FAERS Safety Report 13017257 (Version 1)
Quarter: 2016Q4

REPORT INFORMATION
  Report Type: Report from Study
  Country: US (occurrence: US)
  Receive Date: 20161212
  Receipt Date: 20161212
  Transmission Date: 20170207
  Serious: Yes (Life-Threatening, Other)
  Sender: FDA-Public Use
  Company Number: US-B. BRAUN MEDICAL INC.-1060672

PATIENT
  Age: 62 Year
  Sex: Male

DRUGS (8)
  1. BETABLOCKER [Concomitant]
  2. ADENOSINE. [Concomitant]
     Active Substance: ADENOSINE
     Route: 016
  3. ADENOSINE (24UG/ML OF NORMAL SALINE) [Concomitant]
     Route: 016
  4. SODIUM CHLORIDE INJECTIONS USP 0264-7800-00 0264-7800-10 [Suspect]
     Active Substance: SODIUM CHLORIDE
     Route: 016
  5. HIGH INTENSITY STATIN [Concomitant]
  6. SUBLINGUAL NITROGLYCERIN [Concomitant]
     Route: 060
  7. HEPARIN [Concomitant]
     Active Substance: HEPARIN SODIUM
     Route: 042
  8. CHEWABLE ASPIRIN [Concomitant]
     Active Substance: ASPIRIN
     Route: 048

REACTIONS (1)
  - Ventricular fibrillation [Recovered/Resolved]
